APPROVED DRUG PRODUCT: MESNA
Active Ingredient: MESNA
Strength: 100MG/ML
Dosage Form/Route: INJECTABLE;INTRAVENOUS
Application: A203364 | Product #001
Applicant: RISING PHARMA HOLDINGS INC
Approved: Jul 18, 2014 | RLD: No | RS: No | Type: DISCN